FAERS Safety Report 24860365 (Version 1)
Quarter: 2025Q1

REPORT INFORMATION
  Report Type: Spontaneous
  Country: GB (occurrence: GB)
  Receive Date: 20250120
  Receipt Date: 20250120
  Transmission Date: 20250409
  Serious: Yes (Hospitalization, Other)
  Sender: AUROBINDO
  Company Number: GB-MHRA-MED-202501071547553770-MCTJG

PATIENT
  Age: 44 Year
  Sex: Male
  Weight: 97 kg

DRUGS (1)
  1. NITROFURANTOIN [Suspect]
     Active Substance: NITROFURANTOIN
     Indication: Urinary tract infection
     Dosage: 100 MILLIGRAM, TWO TIMES A DAY (100MG (MR) TWICE A DAY)
     Route: 065
     Dates: start: 20241221, end: 20241224

REACTIONS (1)
  - Liver injury [Not Recovered/Not Resolved]

NARRATIVE: CASE EVENT DATE: 20241224
